FAERS Safety Report 6375553-7 (Version None)
Quarter: 2009Q3

REPORT INFORMATION
  Report Type: 
  Country: None (occurrence: None)
  Receive Date: 20090924
  Receipt Date: 20090916
  Transmission Date: 20100115
  Serious: Yes (Death, Other)
  Sender: FDA-Public Use
  Company Number: US-BAXTER-2009BH012909

PATIENT
  Age: 79 Year
  Sex: Male

DRUGS (8)
  1. HEPARIN SODIUM INJECTION [Suspect]
     Indication: DEEP VEIN THROMBOSIS
     Route: 042
     Dates: start: 20070928, end: 20070929
  2. HEPARIN SODIUM INJECTION [Suspect]
     Indication: RASH
     Route: 042
     Dates: start: 20070928, end: 20070929
  3. HEPARIN SODIUM INJECTION [Suspect]
     Route: 042
     Dates: start: 20071002, end: 20071002
  4. HEPARIN SODIUM INJECTION [Suspect]
     Route: 042
     Dates: start: 20071002, end: 20071002
  5. HEPARIN LOCK-FLUSH [Suspect]
     Indication: DEEP VEIN THROMBOSIS
     Route: 042
     Dates: start: 20071019, end: 20071019
  6. HEPARIN LOCK-FLUSH [Suspect]
     Indication: RASH
     Route: 042
     Dates: start: 20071019, end: 20071019
  7. HEPARIN LOCK-FLUSH [Suspect]
     Route: 042
     Dates: start: 20071031, end: 20071031
  8. HEPARIN LOCK-FLUSH [Suspect]
     Route: 042
     Dates: start: 20071031, end: 20071031

REACTIONS (12)
  - ABDOMINAL PAIN [None]
  - ATRIAL FIBRILLATION [None]
  - CONDITION AGGRAVATED [None]
  - DEEP VEIN THROMBOSIS [None]
  - HEPARIN-INDUCED THROMBOCYTOPENIA [None]
  - HYPOTENSION [None]
  - PNEUMONIA [None]
  - PULMONARY EMBOLISM [None]
  - RASH [None]
  - RENAL FAILURE ACUTE [None]
  - RESPIRATORY FAILURE [None]
  - SEPSIS [None]
